FAERS Safety Report 23197923 (Version 1)
Quarter: 2023Q4

REPORT INFORMATION
  Report Type: Report from Study
  Country: CN (occurrence: CN)
  Receive Date: 20231117
  Receipt Date: 20231117
  Transmission Date: 20240109
  Serious: Yes (Hospitalization)
  Sender: FDA-Public Use
  Company Number: CN-JNJFOC-20231125540

PATIENT
  Age: 43 Year
  Sex: Male
  Weight: 70 kg

DRUGS (11)
  1. TECLISTAMAB [Suspect]
     Active Substance: TECLISTAMAB
     Indication: Plasma cell myeloma
     Route: 058
     Dates: start: 20221222, end: 20230919
  2. TECLISTAMAB [Suspect]
     Active Substance: TECLISTAMAB
     Route: 058
     Dates: start: 20230209, end: 20231018
  3. DARATUMUMAB [Suspect]
     Active Substance: DARATUMUMAB
     Indication: Plasma cell myeloma
     Route: 058
     Dates: start: 20221221, end: 20231018
  4. ACYCLOVIR [Concomitant]
     Active Substance: ACYCLOVIR
     Indication: Herpes zoster
     Dosage: 0.1
     Route: 048
     Dates: start: 20230224
  5. ENTECAVIR [Concomitant]
     Active Substance: ENTECAVIR
     Indication: Hepatitis B reactivation
     Dosage: 0.5
     Route: 048
     Dates: start: 20230224
  6. PANTOPRAZOLE [Concomitant]
     Active Substance: PANTOPRAZOLE
     Indication: Prophylaxis
     Dosage: 40
     Route: 048
     Dates: start: 20230717
  7. THYMALFASIN [Concomitant]
     Active Substance: THYMALFASIN
     Indication: COVID-19 pneumonia
     Dosage: 1.6
     Route: 058
     Dates: start: 20230808
  8. HUMAN IMMUNOGLOBULIN G [Concomitant]
     Active Substance: HUMAN IMMUNOGLOBULIN G
     Indication: Hypogammaglobulinaemia
     Dosage: 10
     Route: 042
     Dates: start: 20231018, end: 20231018
  9. SODIUM BICARBONATE [Concomitant]
     Active Substance: SODIUM BICARBONATE
     Indication: Prophylaxis against dehydration
     Dosage: 60
     Route: 042
     Dates: start: 20230919
  10. SODIUM CHLORIDE [Concomitant]
     Active Substance: SODIUM CHLORIDE
     Indication: Prophylaxis against dehydration
     Dosage: 500
     Route: 042
     Dates: start: 20230919
  11. MUPIROCIN [Concomitant]
     Active Substance: MUPIROCIN
     Indication: Folliculitis
     Dosage: 0.1
     Route: 062
     Dates: start: 20231018

REACTIONS (1)
  - Febrile neutropenia [Not Recovered/Not Resolved]

NARRATIVE: CASE EVENT DATE: 20231108
